FAERS Safety Report 10515213 (Version 18)
Quarter: 2021Q4

REPORT INFORMATION
  Report Type: Other
  Country: CA (occurrence: CA)
  Receive Date: 20141014
  Receipt Date: 20211028
  Transmission Date: 20220303
  Serious: Yes (Other)
  Sender: FDA-Public Use
  Company Number: CA-ROCHE-1473402

PATIENT
  Age: 49 Year
  Sex: Female

DRUGS (18)
  1. XOLAIR [Suspect]
     Active Substance: OMALIZUMAB
     Indication: Asthma
     Route: 058
     Dates: start: 20140609
  2. XOLAIR [Suspect]
     Active Substance: OMALIZUMAB
     Route: 058
     Dates: start: 20140805
  3. XOLAIR [Suspect]
     Active Substance: OMALIZUMAB
     Dosage: UNK
     Route: 058
     Dates: start: 20140908
  4. XOLAIR [Suspect]
     Active Substance: OMALIZUMAB
     Dosage: UNK
     Route: 058
     Dates: start: 20150105
  5. XOLAIR [Suspect]
     Active Substance: OMALIZUMAB
     Dosage: UNK
     Route: 058
     Dates: start: 20150427
  6. XOLAIR [Suspect]
     Active Substance: OMALIZUMAB
     Dosage: UNK
     Route: 058
     Dates: start: 20160429
  7. XOLAIR [Suspect]
     Active Substance: OMALIZUMAB
     Dosage: UNK
     Route: 058
     Dates: start: 20170523
  8. XOLAIR [Suspect]
     Active Substance: OMALIZUMAB
     Dosage: UNK
     Route: 058
     Dates: start: 2017
  9. XOLAIR [Suspect]
     Active Substance: OMALIZUMAB
     Route: 058
     Dates: start: 20171204
  10. XOLAIR [Suspect]
     Active Substance: OMALIZUMAB
     Route: 058
  11. XOLAIR [Suspect]
     Active Substance: OMALIZUMAB
     Route: 058
  12. CYCLOBENZAPRINE [Suspect]
     Active Substance: CYCLOBENZAPRINE
     Indication: Back pain
     Dosage: BED TIME
     Route: 048
  13. ADVAIR HFA [Concomitant]
     Active Substance: FLUTICASONE PROPIONATE\SALMETEROL XINAFOATE
     Indication: Asthma
     Dosage: 2 PUFFS
     Route: 065
  14. ADVAIR HFA [Concomitant]
     Active Substance: FLUTICASONE PROPIONATE\SALMETEROL XINAFOATE
     Dosage: 4-6 PUFFS/DAY
     Route: 065
  15. ADVAIR HFA [Concomitant]
     Active Substance: FLUTICASONE PROPIONATE\SALMETEROL XINAFOATE
     Dosage: 2 DF, BID (AT MORNING AND NIGHT)
     Route: 065
  16. VENTOLIN [Concomitant]
     Active Substance: ALBUTEROL SULFATE
     Indication: Product used for unknown indication
     Dosage: AT LEAST 2 TIMES A DAY, 18-20 PUFFS OF 4 TIMES
     Route: 065
  17. VENTOLIN [Concomitant]
     Active Substance: ALBUTEROL SULFATE
     Route: 065
  18. VENTOLIN [Concomitant]
     Active Substance: ALBUTEROL SULFATE
     Dosage: 18-20 PUFFS IN A WEEK
     Route: 065

REACTIONS (42)
  - Pneumonia [Recovered/Resolved]
  - Asthma [Recovered/Resolved]
  - Diarrhoea haemorrhagic [Unknown]
  - Concomitant disease aggravated [Unknown]
  - Intervertebral disc protrusion [Unknown]
  - Fall [Unknown]
  - Osteoarthritis [Unknown]
  - Back pain [Not Recovered/Not Resolved]
  - Heart rate increased [Recovered/Resolved]
  - Somnolence [Unknown]
  - Rhinorrhoea [Not Recovered/Not Resolved]
  - Burning sensation [Unknown]
  - Influenza [Unknown]
  - Breath sounds abnormal [Unknown]
  - Blood pressure increased [Unknown]
  - Productive cough [Not Recovered/Not Resolved]
  - Middle insomnia [Unknown]
  - Stress [Unknown]
  - Throat irritation [Unknown]
  - Wheezing [Unknown]
  - Dyspnoea exertional [Not Recovered/Not Resolved]
  - Fungal rhinitis [Unknown]
  - Sinusitis fungal [Recovering/Resolving]
  - Thyroid cyst [Unknown]
  - Forced expiratory volume decreased [Unknown]
  - Dizziness exertional [Unknown]
  - Nasal congestion [Unknown]
  - Fatigue [Unknown]
  - Malaise [Unknown]
  - Cough [Unknown]
  - Anosmia [Not Recovered/Not Resolved]
  - Eye pain [Unknown]
  - Seasonal allergy [Unknown]
  - Ageusia [Not Recovered/Not Resolved]
  - Nasopharyngitis [Unknown]
  - Oropharyngeal pain [Recovered/Resolved]
  - Vertigo [Unknown]
  - Sinusitis fungal [Recovering/Resolving]
  - Weight decreased [Unknown]
  - Swelling face [Unknown]
  - Inappropriate schedule of product administration [Unknown]
  - Product dose omission issue [Unknown]

NARRATIVE: CASE EVENT DATE: 20140609
